FAERS Safety Report 25906187 (Version 1)
Quarter: 2025Q4

REPORT INFORMATION
  Report Type: Report from Study
  Country: GB (occurrence: GB)
  Receive Date: 20251010
  Receipt Date: 20251010
  Transmission Date: 20260117
  Serious: Yes (Other)
  Sender: TEVA
  Company Number: GB-TEVA-VS-3379572

PATIENT
  Age: 39 Year
  Sex: Male

DRUGS (1)
  1. AJOVY [Suspect]
     Active Substance: FREMANEZUMAB-VFRM
     Indication: Migraine
     Dosage: 225MG/1.5ML
     Route: 058

REACTIONS (4)
  - Loss of consciousness [Unknown]
  - Injection site pain [Unknown]
  - Fear of injection [Unknown]
  - Dyspnoea [Unknown]
